FAERS Safety Report 25793691 (Version 1)
Quarter: 2025Q3

REPORT INFORMATION
  Report Type: Spontaneous
  Country: EU (occurrence: EU)
  Receive Date: 20250912
  Receipt Date: 20250912
  Transmission Date: 20251020
  Serious: Yes (Hospitalization)
  Sender: SANOFI AVENTIS
  Company Number: EU-SA-2025SA267335

PATIENT
  Age: 71 Year
  Sex: Male

DRUGS (2)
  1. ISATUXIMAB [Suspect]
     Active Substance: ISATUXIMAB
  2. METHYLPREDNISOLONE [Concomitant]
     Active Substance: METHYLPREDNISOLONE

REACTIONS (5)
  - Headache [Unknown]
  - Osteolysis [Unknown]
  - Arteritis [Unknown]
  - Back pain [Unknown]
  - Asthenia [Unknown]
